FAERS Safety Report 7411368-6 (Version None)
Quarter: 2011Q2

REPORT INFORMATION
  Report Type: 
  Country: None (occurrence: None)
  Receive Date: 20110413
  Receipt Date: 20100628
  Transmission Date: 20111010
  Serious: Yes (Other)
  Sender: FDA-Public Use
  Company Number: US-BRISTOL-MYERS SQUIBB COMPANY-15172182

PATIENT
  Sex: Male

DRUGS (3)
  1. ERBITUX [Suspect]
     Dosage: INFUSION
     Route: 042
     Dates: start: 20100406, end: 20100406
  2. PERCOCET [Concomitant]
     Indication: PAIN
  3. XANAX [Concomitant]
     Indication: ANXIETY

REACTIONS (1)
  - ANAPHYLACTOID REACTION [None]
